FAERS Safety Report 8973628 (Version 1)
Quarter: 2012Q4

REPORT INFORMATION
  Report Type: 
  Country: US (occurrence: US)
  Receive Date: 20121218
  Receipt Date: 20121218
  Transmission Date: 20130627
  Serious: No
  Sender: FDA-Public Use
  Company Number: US-BRISTOL-MYERS SQUIBB COMPANY-16425936

PATIENT
  Age: 24 Year
  Sex: Female
  Weight: 93.87 kg

DRUGS (3)
  1. ABILIFY [Suspect]
     Indication: BIPOLAR DISORDER
     Dates: start: 201101
  2. METOPROLOL [Concomitant]
  3. TEGRETOL [Concomitant]

REACTIONS (1)
  - Dyskinesia [Not Recovered/Not Resolved]
